FAERS Safety Report 5612511-1 (Version None)
Quarter: 2008Q1

REPORT INFORMATION
  Report Type: 
  Country: None (occurrence: None)
  Receive Date: 20080204
  Receipt Date: 20080130
  Transmission Date: 20080703
  Serious: Yes (Other)
  Sender: FDA-Public Use
  Company Number: GB-BRISTOL-MYERS SQUIBB COMPANY-14058580

PATIENT
  Age: 77 Year
  Sex: Male

DRUGS (1)
  1. SPRYCEL [Suspect]
     Dates: start: 20071201, end: 20071201

REACTIONS (3)
  - ATRIAL FIBRILLATION [None]
  - BUNDLE BRANCH BLOCK LEFT [None]
  - PLEURAL EFFUSION [None]
